FAERS Safety Report 4935127-9 (Version None)
Quarter: 2006Q1

REPORT INFORMATION
  Report Type: 
  Country: None (occurrence: None)
  Receive Date: 20060306
  Receipt Date: 20060306
  Transmission Date: 20060701
  Serious: Yes (Hospitalization, Other)
  Sender: FDA-Public Use
  Company Number: None

PATIENT
  Age: 37 Year
  Sex: Male
  Weight: 83.9154 kg

DRUGS (1)
  1. CIPRO [Suspect]
     Indication: PROSTATITIS
     Dosage: 500 TWICE PO
     Route: 048
     Dates: start: 20030703, end: 20030710

REACTIONS (19)
  - ABASIA [None]
  - ABDOMINAL PAIN UPPER [None]
  - DEAFNESS [None]
  - DIZZINESS [None]
  - EAR PAIN [None]
  - HEADACHE [None]
  - HELICOBACTER INFECTION [None]
  - HYPERACUSIS [None]
  - HYPERSENSITIVITY [None]
  - IMPAIRED DRIVING ABILITY [None]
  - INSOMNIA [None]
  - IRRITABLE BOWEL SYNDROME [None]
  - MICTURITION DISORDER [None]
  - MOVEMENT DISORDER [None]
  - PAIN [None]
  - TENDON DISORDER [None]
  - TINNITUS [None]
  - ULCER [None]
  - VISUAL DISTURBANCE [None]
